FAERS Safety Report 15604912 (Version 1)
Quarter: 2018Q4

REPORT INFORMATION
  Report Type: Report from Study
  Country: GB (occurrence: GB)
  Receive Date: 20181111
  Receipt Date: 20181111
  Transmission Date: 20190205
  Serious: Yes (Other)
  Sender: FDA-Public Use
  Company Number: GB-BIOVITRUM-2018BV000192

PATIENT
  Sex: Male
  Weight: 8.5 kg

DRUGS (11)
  1. ANTIHEMOPHILIC FACTOR (RECOMBINANT), FC FUSION PROTEIN [Suspect]
     Active Substance: (1-743)-(1638-2332)-BLOOD-COAGULATION FACTOR VIII (SYNTHETIC HUMAN) FUSION PROTEIN WITH IMMUNOGLOBULIN G1 (SYNTHETIC HUMAN FC DOMAIN FRAGMENT), (1444-6^),(1447-9^)-BIS(DISULFIDE) WITH IMMUNOGLOBULIN G1 (SYNTHETIC HUMAN FC DOMAIN FRAGMENT)
     Indication: IMMUNE TOLERANCE INDUCTION
     Dosage: 14 EXPOSURE DAYS
     Route: 042
     Dates: start: 20180304
  2. ONDANSETRON [Concomitant]
     Active Substance: ONDANSETRON
     Indication: CENTRAL VENOUS CATHETERISATION
     Dosage: SINGLE DOSE
     Route: 042
     Dates: start: 20180216, end: 20180216
  3. PARACETAMOL [Concomitant]
     Active Substance: ACETAMINOPHEN
     Indication: CENTRAL VENOUS CATHETERISATION
     Dosage: SINGLE DOSE
     Route: 042
     Dates: start: 20180216, end: 20180216
  4. FENTANYL. [Concomitant]
     Active Substance: FENTANYL
     Indication: CENTRAL VENOUS CATHETERISATION
     Dosage: SINGLE DOSE
     Route: 042
     Dates: start: 20180216, end: 20180216
  5. ANTIHEMOPHILIC FACTOR (RECOMBINANT), FC FUSION PROTEIN [Suspect]
     Active Substance: (1-743)-(1638-2332)-BLOOD-COAGULATION FACTOR VIII (SYNTHETIC HUMAN) FUSION PROTEIN WITH IMMUNOGLOBULIN G1 (SYNTHETIC HUMAN FC DOMAIN FRAGMENT), (1444-6^),(1447-9^)-BIS(DISULFIDE) WITH IMMUNOGLOBULIN G1 (SYNTHETIC HUMAN FC DOMAIN FRAGMENT)
     Indication: FACTOR VIII DEFICIENCY
     Route: 042
     Dates: start: 20171012
  6. ANTIHEMOPHILIC FACTOR (RECOMBINANT), FC FUSION PROTEIN [Suspect]
     Active Substance: (1-743)-(1638-2332)-BLOOD-COAGULATION FACTOR VIII (SYNTHETIC HUMAN) FUSION PROTEIN WITH IMMUNOGLOBULIN G1 (SYNTHETIC HUMAN FC DOMAIN FRAGMENT), (1444-6^),(1447-9^)-BIS(DISULFIDE) WITH IMMUNOGLOBULIN G1 (SYNTHETIC HUMAN FC DOMAIN FRAGMENT)
     Route: 065
     Dates: start: 20180417
  7. ANTIHEMOPHILIC FACTOR (RECOMBINANT), FC FUSION PROTEIN [Suspect]
     Active Substance: (1-743)-(1638-2332)-BLOOD-COAGULATION FACTOR VIII (SYNTHETIC HUMAN) FUSION PROTEIN WITH IMMUNOGLOBULIN G1 (SYNTHETIC HUMAN FC DOMAIN FRAGMENT), (1444-6^),(1447-9^)-BIS(DISULFIDE) WITH IMMUNOGLOBULIN G1 (SYNTHETIC HUMAN FC DOMAIN FRAGMENT)
     Indication: PROPHYLAXIS
     Dosage: START PROPHYLAXIS
     Route: 065
     Dates: start: 20180222
  8. ATRACURIUM [Concomitant]
     Active Substance: ATRACURIUM
     Indication: CENTRAL VENOUS CATHETERISATION
     Dosage: SINGLE DOSE
     Route: 042
     Dates: start: 20180216, end: 20180216
  9. TRANEXAMIC ACID. [Concomitant]
     Active Substance: TRANEXAMIC ACID
     Route: 048
     Dates: start: 20180216, end: 20180226
  10. ANTIHEMOPHILIC FACTOR (RECOMBINANT), FC FUSION PROTEIN [Suspect]
     Active Substance: (1-743)-(1638-2332)-BLOOD-COAGULATION FACTOR VIII (SYNTHETIC HUMAN) FUSION PROTEIN WITH IMMUNOGLOBULIN G1 (SYNTHETIC HUMAN FC DOMAIN FRAGMENT), (1444-6^),(1447-9^)-BIS(DISULFIDE) WITH IMMUNOGLOBULIN G1 (SYNTHETIC HUMAN FC DOMAIN FRAGMENT)
     Dosage: START PROPHYLAXIS
     Route: 065
     Dates: start: 20180228
  11. TRANEXAMIC ACID. [Concomitant]
     Active Substance: TRANEXAMIC ACID
     Indication: SURGERY
     Dosage: SINGLE DOSE
     Route: 042
     Dates: start: 20180216, end: 20180216

REACTIONS (1)
  - Factor VIII inhibition [Not Recovered/Not Resolved]

NARRATIVE: CASE EVENT DATE: 20180305
